FAERS Safety Report 10343407 (Version 2)
Quarter: 2014Q3

REPORT INFORMATION
  Report Type: Report from Study
  Country: US (occurrence: US)
  Receive Date: 20140725
  Receipt Date: 20140730
  Transmission Date: 20150326
  Serious: Yes (Hospitalization)
  Sender: FDA-Public Use
  Company Number: US-009507513-1407USA011183

PATIENT
  Age: 56 Year
  Sex: Male
  Weight: 85.2 kg

DRUGS (10)
  1. DOCUSATE SODIUM. [Concomitant]
     Active Substance: DOCUSATE SODIUM
  2. LOVENOX [Concomitant]
     Active Substance: ENOXAPARIN SODIUM
  3. SENNA [Concomitant]
     Active Substance: SENNA LEAF\SENNOSIDES\SENNOSIDES A AND B
  4. KEPPRA [Concomitant]
     Active Substance: LEVETIRACETAM
  5. NYSTATIN. [Concomitant]
     Active Substance: NYSTATIN
  6. ZOFRAN [Concomitant]
     Active Substance: ONDANSETRON HYDROCHLORIDE
  7. PANTOPRAZOLE [Concomitant]
     Active Substance: PANTOPRAZOLE SODIUM
  8. DECADRON [Concomitant]
     Active Substance: DEXAMETHASONE
  9. MK-1775 [Suspect]
     Active Substance: INVESTIGATIONAL PRODUCT
     Indication: GLIOBLASTOMA MULTIFORME
     Dosage: 100MG PO ON DAYS 1-5 QWEEK FOR 6WEEKS
     Route: 048
     Dates: start: 20140428, end: 20140609
  10. TEMOZOLOMIDE [Suspect]
     Active Substance: TEMOZOLOMIDE
     Indication: GLIOBLASTOMA MULTIFORME
     Dosage: 75 MG/M2, QD, FOR 6 WEEKS
     Route: 048
     Dates: start: 20140428, end: 20140609

REACTIONS (3)
  - Hydrocephalus [Not Recovered/Not Resolved]
  - Lung infection [Not Recovered/Not Resolved]
  - Carcinoid tumour [Not Recovered/Not Resolved]

NARRATIVE: CASE EVENT DATE: 20140717
